FAERS Safety Report 8662452 (Version 2)
Quarter: 2012Q4

REPORT INFORMATION
  Report Type: 
  Country: US (occurrence: US)
  Receive Date: 20120712
  Receipt Date: 20121213
  Transmission Date: 20130627
  Serious: Yes (Hospitalization, Other)
  Sender: FDA-Public Use
  Company Number: US-PFIZER INC-2012166463

PATIENT
  Age: 50 Year
  Sex: Female
  Weight: 86.17 kg

DRUGS (2)
  1. LYRICA [Suspect]
     Indication: FIBROMYALGIA
     Dosage: 150 mg, 3x/day
     Dates: start: 2009, end: 20120702
  2. LYRICA [Suspect]
     Indication: NERVE PAIN
     Dosage: 150 mg, 3x/day

REACTIONS (3)
  - Wrist fracture [Unknown]
  - Fall [Unknown]
  - Nausea [Recovering/Resolving]
